FAERS Safety Report 17692430 (Version 1)
Quarter: 2020Q2

REPORT INFORMATION
  Report Type: Spontaneous
  Country: JP (occurrence: JP)
  Receive Date: 20200422
  Receipt Date: 20200422
  Transmission Date: 20200714
  Serious: Yes (Other)
  Sender: FDA-Public Use
  Company Number: JP-GEHPL-2020JSU001605AA

PATIENT

DRUGS (5)
  1. OMNIPAQUE [Suspect]
     Active Substance: IOHEXOL
     Indication: FATIGUE
  2. OMNIPAQUE [Suspect]
     Active Substance: IOHEXOL
     Indication: DECREASED APPETITE
  3. OMNIPAQUE [Suspect]
     Active Substance: IOHEXOL
     Indication: WEIGHT DECREASED
  4. HEPARIN SODIUM. [Concomitant]
     Active Substance: HEPARIN SODIUM
     Indication: HAEMODIALYSIS
     Dosage: 1000 U BOLUS, FOLLOWED BY 1000 U/H INFUSION
  5. OMNIPAQUE [Suspect]
     Active Substance: IOHEXOL
     Indication: COMPUTERISED TOMOGRAM
     Dosage: 150 ML, SINGLE
     Route: 065

REACTIONS (1)
  - Thrombocytopenia [Recovered/Resolved]
